FAERS Safety Report 24203922 (Version 1)
Quarter: 2024Q3

REPORT INFORMATION
  Report Type: Spontaneous
  Country: CA (occurrence: CA)
  Receive Date: 20240813
  Receipt Date: 20240813
  Transmission Date: 20241017
  Serious: Yes (Death, Life-Threatening, Hospitalization, Other)
  Sender: AUROBINDO
  Company Number: CA-AUROBINDO-AUR-APL-2024-039819

PATIENT
  Age: 82 Year
  Sex: Female
  Weight: 72 kg

DRUGS (8)
  1. AMPICILLIN [Suspect]
     Active Substance: AMPICILLIN
     Indication: Escherichia bacteraemia
     Dosage: 2000 MILLIGRAM, FOUR TIMES/DAY
     Route: 042
  2. AMPICILLIN [Suspect]
     Active Substance: AMPICILLIN
     Indication: Pyelonephritis
  3. CIPROFLOXACIN [Suspect]
     Active Substance: CIPROFLOXACIN
     Indication: Escherichia bacteraemia
     Dosage: 500 MILLIGRAM, TWO TIMES A DAY
     Route: 065
  4. CEFTAZIDIME [Suspect]
     Active Substance: CEFTAZIDIME
     Indication: Escherichia bacteraemia
     Dosage: 2000 MILLIGRAM, TWO TIMES A DAY
     Route: 042
  5. CEFTAZIDIME [Suspect]
     Active Substance: CEFTAZIDIME
     Indication: Pyelonephritis
     Dosage: 2000 MILLIGRAM, TWO TIMES A DAY
     Route: 042
  6. AMOXICILLIN\CLAVULANATE POTASSIUM [Suspect]
     Active Substance: AMOXICILLIN\CLAVULANATE POTASSIUM
     Indication: Pyelonephritis
     Dosage: 875 MILLIGRAM, TWO TIMES A DAY
     Route: 065
  7. PIPERACILLIN SODIUM\TAZOBACTAM SODIUM [Suspect]
     Active Substance: PIPERACILLIN SODIUM\TAZOBACTAM SODIUM
     Indication: Escherichia bacteraemia
     Dosage: 3 GRAM, 3 TIMES A DAY
     Route: 042
  8. PIPERACILLIN SODIUM\TAZOBACTAM SODIUM [Suspect]
     Active Substance: PIPERACILLIN SODIUM\TAZOBACTAM SODIUM
     Indication: Pyelonephritis
     Dosage: 1 DOSAGE FORM, 3 TIMES A DAY
     Route: 042

REACTIONS (4)
  - Clostridium difficile colitis [Fatal]
  - Delirium [Fatal]
  - General physical health deterioration [Fatal]
  - Myoclonus [Fatal]
